FAERS Safety Report 10302762 (Version 3)
Quarter: 2015Q1

REPORT INFORMATION
  Report Type: Spontaneous
  Country: US (occurrence: US)
  Receive Date: 20140714
  Receipt Date: 20150130
  Transmission Date: 20150720
  Serious: Yes (Hospitalization, Other)
  Sender: FDA-Public Use
  Company Number: US-GLAXOSMITHKLINE-A1080573A

PATIENT
  Sex: Female

DRUGS (21)
  1. BOTOX [Concomitant]
     Active Substance: ONABOTULINUMTOXINA
  2. AMITRIPTYLENE [Concomitant]
  3. TRICALCIUM PHOSPHATE [Concomitant]
     Active Substance: TRICALCIUM PHOSPHATE
  4. ATARAX [Concomitant]
     Active Substance: HYDROXYZINE\HYDROXYZINE HYDROCHLORIDE
  5. ZOLPIDEM [Concomitant]
     Active Substance: ZOLPIDEM\ZOLPIDEM TARTRATE
  6. VENTOLIN [Suspect]
     Active Substance: ALBUTEROL SULFATE
     Indication: ASTHMA
     Dosage: 1 PUFF TWICE PER DAY AS NEEDED
     Route: 055
     Dates: start: 2010
  7. LASIX [Concomitant]
     Active Substance: FUROSEMIDE
  8. PREDNISONE. [Concomitant]
     Active Substance: PREDNISONE
  9. NEXIUM [Concomitant]
     Active Substance: ESOMEPRAZOLE MAGNESIUM
  10. TRETINOIN CREAM [Concomitant]
     Active Substance: TRETINOIN
  11. CARVEDILOL. [Concomitant]
     Active Substance: CARVEDILOL
  12. ADVAIR HFA [Suspect]
     Active Substance: FLUTICASONE PROPIONATE\SALMETEROL XINAFOATE
     Indication: ASTHMA
     Dosage: 1 PUFF(S), BID
     Route: 055
     Dates: start: 20140708
  13. LIDODERM [Concomitant]
     Active Substance: LIDOCAINE
     Route: 062
  14. OXYCODONE WITH ACETAMINOPHEN [Concomitant]
  15. ZOLOFT [Concomitant]
     Active Substance: SERTRALINE HYDROCHLORIDE
  16. RESTASIS [Concomitant]
     Active Substance: CYCLOSPORINE
  17. ADVAIR HFA [Suspect]
     Active Substance: FLUTICASONE PROPIONATE\SALMETEROL XINAFOATE
     Indication: DYSPNOEA
     Dosage: 2 UNK, UNK
  18. SYMBICORT [Suspect]
     Active Substance: BUDESONIDE\FORMOTEROL FUMARATE DIHYDRATE
     Indication: PRODUCT USED FOR UNKNOWN INDICATION
     Route: 065
  19. DIAZEPAM. [Concomitant]
     Active Substance: DIAZEPAM
  20. COMPAZINE [Concomitant]
     Active Substance: PROCHLORPERAZINE MALEATE
  21. ONDANSETRON [Concomitant]
     Active Substance: ONDANSETRON

REACTIONS (12)
  - Dyspnoea [Recovered/Resolved]
  - Visual impairment [Not Recovered/Not Resolved]
  - Asthma [Recovering/Resolving]
  - Therapeutic response unexpected [Unknown]
  - Chest discomfort [Recovering/Resolving]
  - Blindness transient [Recovered/Resolved]
  - Drug ineffective [Recovering/Resolving]
  - Off label use [Unknown]
  - Wheezing [Recovering/Resolving]
  - Burning sensation [Recovering/Resolving]
  - Overdose [Unknown]
  - Systemic lupus erythematosus [Not Recovered/Not Resolved]

NARRATIVE: CASE EVENT DATE: 2012
